FAERS Safety Report 23922489 (Version 2)
Quarter: 2024Q3

REPORT INFORMATION
  Report Type: Spontaneous
  Country: FR (occurrence: FR)
  Receive Date: 20240531
  Receipt Date: 20240710
  Transmission Date: 20241016
  Serious: Yes (Hospitalization)
  Sender: AUROBINDO
  Company Number: FR-AFSSAPS-AN2024000695

PATIENT
  Age: 10 Year
  Sex: Female

DRUGS (1)
  1. METRONIDAZOLE [Suspect]
     Active Substance: METRONIDAZOLE
     Indication: Parasitic gastroenteritis
     Dosage: 1.5 GRAM, ONCE A DAY
     Route: 048
     Dates: start: 20240426, end: 20240502

REACTIONS (3)
  - Behaviour disorder [Recovered/Resolved]
  - Neurologic somatic symptom disorder [Recovered/Resolved]
  - Vomiting [Recovered/Resolved]

NARRATIVE: CASE EVENT DATE: 20240430
